FAERS Safety Report 14326844 (Version 2)
Quarter: 2018Q1

REPORT INFORMATION
  Report Type: Spontaneous
  Country: JP (occurrence: JP)
  Receive Date: 20171227
  Receipt Date: 20180308
  Transmission Date: 20180509
  Serious: Yes (Death, Hospitalization, Disabling)
  Sender: FDA-Public Use
  Company Number: JP-AMGEN-JPNSP2017190860

PATIENT
  Age: 64 Year
  Sex: Male
  Weight: 49 kg

DRUGS (13)
  1. RANMARK [Suspect]
     Active Substance: DENOSUMAB
     Indication: PROSTATE CANCER
  2. G LASTA [Concomitant]
     Active Substance: PEGFILGRASTIM
     Indication: PROSTATE CANCER
     Dosage: 3.6 MG, QD
     Route: 058
     Dates: start: 20170519, end: 20170519
  3. FLOMOX [Concomitant]
     Active Substance: CEFCAPENE PIVOXIL HYDROCHLORIDE HYDRATE
     Dosage: 300 MG, QD
     Dates: end: 20170310
  4. DEXART [Concomitant]
     Active Substance: DEXAMETHASONE SODIUM PHOSPHATE
     Indication: PROSTATE CANCER
     Dosage: 6.6 MG, QD
     Route: 042
     Dates: start: 20161215, end: 20161215
  5. DEXART [Concomitant]
     Active Substance: DEXAMETHASONE SODIUM PHOSPHATE
     Dosage: 6.6 MG, QD
     Route: 042
     Dates: start: 20170513, end: 20170521
  6. LEUPLIN [Concomitant]
     Active Substance: LEUPROLIDE ACETATE
     Indication: PROSTATE CANCER
     Dosage: 11.25 MG, QD
     Route: 058
     Dates: start: 20161215, end: 20161215
  7. ZITHROMAC [Concomitant]
     Active Substance: AZITHROMYCIN DIHYDRATE
     Dosage: 500 MG, QD
     Dates: start: 20170322, end: 20170324
  8. RANMARK [Suspect]
     Active Substance: DENOSUMAB
     Indication: METASTASES TO BONE
     Dosage: 120 MG, Q4WK
     Route: 058
     Dates: start: 20130822, end: 20161215
  9. FAROM [Concomitant]
     Active Substance: FAROPENEM SODIUM
     Dosage: 600 MG, QD
     Dates: start: 20170310, end: 20170314
  10. DOCETAXEL. [Concomitant]
     Active Substance: DOCETAXEL
     Indication: PROSTATE CANCER
     Dosage: 20 MG, QD
     Route: 042
     Dates: start: 20161215, end: 20161215
  11. DOCETAXEL. [Concomitant]
     Active Substance: DOCETAXEL
     Dosage: 80 MG, QD
     Route: 042
     Dates: start: 20170517, end: 20170517
  12. LEUPLIN [Concomitant]
     Active Substance: LEUPROLIDE ACETATE
     Dosage: 11.25 MG, QD
     Route: 058
     Dates: start: 20170201, end: 20170201
  13. CRAVIT [Concomitant]
     Active Substance: LEVOFLOXACIN
     Dosage: 500 MG, QD
     Dates: start: 20170315, end: 20170325

REACTIONS (3)
  - Osteomyelitis [Not Recovered/Not Resolved]
  - Death [Fatal]
  - Cellulitis [Recovered/Resolved]

NARRATIVE: CASE EVENT DATE: 20170120
